FAERS Safety Report 22043320 (Version 1)
Quarter: 2023Q1

REPORT INFORMATION
  Report Type: Spontaneous
  Country: CN (occurrence: CN)
  Receive Date: 20230228
  Receipt Date: 20230228
  Transmission Date: 20230418
  Serious: Yes (Other)
  Sender: FDA-Public Use
  Company Number: None

PATIENT
  Age: 51 Year
  Sex: Male

DRUGS (8)
  1. PREDNISONE [Suspect]
     Active Substance: PREDNISONE
     Indication: Angioimmunoblastic T-cell lymphoma
  2. CYCLOPHOSPHAMIDE [Concomitant]
     Active Substance: CYCLOPHOSPHAMIDE
     Indication: Angioimmunoblastic T-cell lymphoma
  3. EPIRUBICIN [Concomitant]
     Active Substance: EPIRUBICIN
     Indication: Angioimmunoblastic T-cell lymphoma
  4. VINCRISTINE [Concomitant]
     Active Substance: VINCRISTINE
     Indication: Angioimmunoblastic T-cell lymphoma
  5. ETOPOSIDE [Concomitant]
     Active Substance: ETOPOSIDE
     Indication: Angioimmunoblastic T-cell lymphoma
  6. GEMCITABINE [Concomitant]
     Active Substance: GEMCITABINE
     Indication: Angioimmunoblastic T-cell lymphoma
  7. CISPLATIN [Concomitant]
     Active Substance: CISPLATIN
     Indication: Angioimmunoblastic T-cell lymphoma
  8. DEXAMETHASONE [Concomitant]
     Active Substance: DEXAMETHASONE
     Indication: Angioimmunoblastic T-cell lymphoma

REACTIONS (1)
  - Myelosuppression [Unknown]
